FAERS Safety Report 9049898 (Version 1)
Quarter: 2013Q1

REPORT INFORMATION
  Report Type: Report from Study
  Country: KR (occurrence: KR)
  Receive Date: 20130205
  Receipt Date: 20130205
  Transmission Date: 20140127
  Serious: Yes (Death, Other)
  Sender: FDA-Public Use
  Company Number: KR-ROCHE-1187627

PATIENT
  Sex: Male

DRUGS (3)
  1. CAPECITABINE [Suspect]
     Indication: HEPATIC CANCER
     Route: 048
  2. DOXORUBICIN [Suspect]
     Indication: HEPATIC CANCER
     Route: 042
  3. CISPLATIN [Suspect]
     Indication: HEPATIC CANCER
     Route: 065

REACTIONS (2)
  - Hypovolaemic shock [Fatal]
  - Gastric varices haemorrhage [Unknown]
